FAERS Safety Report 12764082 (Version 2)
Quarter: 2016Q4

REPORT INFORMATION
  Report Type: Report from Study
  Country: None (occurrence: CA)
  Receive Date: 20160920
  Receipt Date: 20161025
  Transmission Date: 20170207
  Serious: Yes (Hospitalization, Other)
  Sender: FDA-Public Use
  Company Number: CA-ABBVIE-16K-028-1728314-00

PATIENT
  Age: 21 Year
  Sex: Male
  Weight: 54.48 kg

DRUGS (2)
  1. HUMIRA [Suspect]
     Active Substance: ADALIMUMAB
     Indication: CROHN^S DISEASE
     Route: 058
     Dates: start: 2009
  2. HUMIRA [Suspect]
     Active Substance: ADALIMUMAB
     Route: 058
     Dates: start: 20101223, end: 20160724

REACTIONS (7)
  - Intestinal obstruction [Recovering/Resolving]
  - Small intestinal obstruction [Recovering/Resolving]
  - Small intestinal stenosis [Recovering/Resolving]
  - Weight fluctuation [Unknown]
  - Coeliac disease [Unknown]
  - Drug effect decreased [Not Recovered/Not Resolved]
  - Abdominal operation [Unknown]

NARRATIVE: CASE EVENT DATE: 20150120
